FAERS Safety Report 5274973-1 (Version None)
Quarter: 2007Q1

REPORT INFORMATION
  Report Type: 
  Country: None (occurrence: None)
  Receive Date: 20061207
  Receipt Date: 20060103
  Transmission Date: 20070707
  Serious: No
  Sender: FDA-Public Use
  Company Number: 2005UW00079

PATIENT
  Age: 78 Year
  Sex: Male

DRUGS (9)
  1. TOPROL-XL [Suspect]
     Indication: HEART RATE INCREASED
     Dosage: 50 MG PO
     Route: 048
     Dates: start: 20051102
  2. TOPROL-XL [Suspect]
     Indication: HEART RATE INCREASED
     Dosage: 100 MG PO
     Route: 048
     Dates: start: 20051118
  3. COUMADIN [Concomitant]
  4. LEXAPRO [Concomitant]
  5. CEDIGOCINE [Concomitant]
  6. PLAVIX [Concomitant]
  7. LISINOPRIL [Concomitant]
  8. PROSCAR [Concomitant]
  9. LORAZEPAM [Concomitant]

REACTIONS (6)
  - DEPRESSION [None]
  - DIARRHOEA [None]
  - DIZZINESS [None]
  - FATIGUE [None]
  - MYOCARDIAL INFARCTION [None]
  - RASH [None]
